FAERS Safety Report 5429478-1 (Version None)
Quarter: 2007Q3

REPORT INFORMATION
  Report Type: 
  Country: None (occurrence: None)
  Receive Date: 20070829
  Receipt Date: 20070824
  Transmission Date: 20080115
  Serious: Yes (Life-Threatening)
  Sender: FDA-Public Use
  Company Number: B0480869A

PATIENT
  Age: 40 Year
  Sex: Female
  Weight: 48 kg

DRUGS (2)
  1. PAXIL [Suspect]
     Indication: DRUG USE FOR UNKNOWN INDICATION
     Dosage: 10MG TWICE PER DAY
     Route: 048
     Dates: start: 20070407
  2. PENICILLIN V [Concomitant]

REACTIONS (2)
  - SUICIDAL IDEATION [None]
  - SUICIDE ATTEMPT [None]
